FAERS Safety Report 11067420 (Version 1)
Quarter: 2015Q2

REPORT INFORMATION
  Report Type: Spontaneous
  Country: FI (occurrence: FI)
  Receive Date: 20150427
  Receipt Date: 20150427
  Transmission Date: 20150821
  Serious: Yes (Other)
  Sender: FDA-Public Use
  Company Number: FI-ROCHE-1219685

PATIENT
  Age: 30 Year
  Sex: Female

DRUGS (21)
  1. XELODA [Suspect]
     Active Substance: CAPECITABINE
     Indication: NEOPLASM MALIGNANT
     Route: 048
     Dates: start: 201208, end: 201303
  2. XELODA [Suspect]
     Active Substance: CAPECITABINE
     Route: 048
     Dates: start: 201305, end: 201312
  3. LAPATINIB [Concomitant]
     Active Substance: LAPATINIB
     Dosage: RESTARTED
     Route: 065
  4. DENOSUMAB [Concomitant]
     Active Substance: DENOSUMAB
     Indication: NEOPLASM MALIGNANT
     Route: 065
     Dates: start: 201208, end: 201312
  5. DOCETAXEL. [Concomitant]
     Active Substance: DOCETAXEL
     Route: 065
     Dates: start: 20120615
  6. PACLITAXEL. [Concomitant]
     Active Substance: PACLITAXEL
     Indication: NEOPLASM MALIGNANT
     Route: 065
     Dates: start: 201412
  7. DENOSUMAB [Concomitant]
     Active Substance: DENOSUMAB
     Dosage: RESTARTED
     Route: 065
     Dates: start: 201408
  8. ZOLEDRONATE [Concomitant]
     Active Substance: ZOLEDRONIC ACID
     Route: 065
     Dates: start: 201312, end: 201408
  9. EPIRUBICIN [Concomitant]
     Active Substance: EPIRUBICIN
  10. LAPATINIB [Concomitant]
     Active Substance: LAPATINIB
     Indication: NEOPLASM MALIGNANT
     Route: 065
     Dates: start: 201208, end: 201312
  11. XELODA [Suspect]
     Active Substance: CAPECITABINE
     Dosage: DOSE REDUCED
     Route: 048
  12. XELODA [Suspect]
     Active Substance: CAPECITABINE
     Route: 048
     Dates: start: 20120615
  13. TRASTUZUMAB EMTANSINE [Suspect]
     Active Substance: ADO-TRASTUZUMAB EMTANSINE
     Indication: NEOPLASM MALIGNANT
     Route: 065
     Dates: start: 201312, end: 201408
  14. ZOLADEX [Concomitant]
     Active Substance: GOSERELIN ACETATE
     Dosage: RESTARTED
     Route: 065
  15. TRASTUZUMAB [Concomitant]
     Active Substance: TRASTUZUMAB
     Route: 065
     Dates: start: 20120615
  16. PERTUZUMAB [Concomitant]
     Active Substance: PERTUZUMAB
     Route: 065
     Dates: start: 20120615
  17. TRASTUZUMAB [Concomitant]
     Active Substance: TRASTUZUMAB
     Indication: NEOPLASM MALIGNANT
     Route: 065
     Dates: start: 201412
  18. ZOLADEX [Concomitant]
     Active Substance: GOSERELIN ACETATE
     Indication: NEOPLASM MALIGNANT
     Route: 065
     Dates: start: 201208
  19. 5-FLUOROURACIL [Concomitant]
     Active Substance: FLUOROURACIL
  20. TAMOXIFEN [Concomitant]
     Active Substance: TAMOXIFEN
  21. CARBOPLATIN. [Concomitant]
     Active Substance: CARBOPLATIN
     Indication: NEOPLASM MALIGNANT
     Route: 065
     Dates: start: 201412

REACTIONS (6)
  - Paronychia [Unknown]
  - Diarrhoea [Unknown]
  - Gingivitis [Unknown]
  - Back pain [Unknown]
  - Rash [Unknown]
  - Palmar-plantar erythrodysaesthesia syndrome [Unknown]

NARRATIVE: CASE EVENT DATE: 2013
